FAERS Safety Report 9637892 (Version 1)
Quarter: 2013Q4

REPORT INFORMATION
  Report Type: Report from Study
  Country: US (occurrence: US)
  Receive Date: 20131022
  Receipt Date: 20131022
  Transmission Date: 20140711
  Serious: Yes (Other)
  Sender: FDA-Public Use
  Company Number: US-ROCHE-1291611

PATIENT
  Age: 62 Year
  Sex: Female

DRUGS (9)
  1. HERCEPTIN [Suspect]
     Indication: BREAST CANCER
     Route: 065
  2. HERCEPTIN [Suspect]
     Indication: METASTASES TO LIVER
  3. HERCEPTIN [Suspect]
     Indication: METASTASES TO BONE
  4. HERCEPTIN [Suspect]
     Indication: THROMBOCYTOPENIA
  5. XGEVA [Concomitant]
     Route: 058
  6. ADVAIR DISKUS [Concomitant]
     Dosage: 100MCG-50MCG, 2 PUFFS BID
     Route: 065
  7. PROTONIX (UNITED STATES) [Concomitant]
     Route: 048
  8. SINGULAIR [Concomitant]
     Dosage: PM
     Route: 048
  9. THEOPHYLLINE [Concomitant]
     Route: 048

REACTIONS (6)
  - Varices oesophageal [Unknown]
  - Platelet count decreased [Unknown]
  - Carcinoembryonic antigen increased [Unknown]
  - Gastrooesophageal reflux disease [Unknown]
  - Portal hypertension [Unknown]
  - Blood pressure systolic increased [Unknown]
